FAERS Safety Report 9234417 (Version 3)
Quarter: 2014Q1

REPORT INFORMATION
  Report Type: Spontaneous
  Country: CA (occurrence: CA)
  Receive Date: 20130416
  Receipt Date: 20140121
  Transmission Date: 20141002
  Serious: Yes (Other)
  Sender: FDA-Public Use
  Company Number: CA-ASTRAZENECA-2013SE23061

PATIENT
  Age: 73 Year
  Sex: Female

DRUGS (11)
  1. CRESTOR [Suspect]
     Indication: HYPERLIPIDAEMIA
     Route: 048
     Dates: start: 2009
  2. ZESTRIL [Suspect]
     Indication: HYPERTENSION
     Route: 048
  3. ASPIRIN [Concomitant]
     Indication: ANTICOAGULANT THERAPY
     Route: 048
  4. AVALIDE [Concomitant]
     Indication: HYPERTENSION
     Dosage: 300/25, ONCE DAILY
     Route: 048
  5. NEURONTIN [Concomitant]
     Route: 048
  6. NORVASC [Concomitant]
     Indication: HYPERTENSION
     Route: 048
  7. VITAMIN D [Concomitant]
     Dosage: 1000 UNITS ONCE WEEKLY
     Route: 048
  8. NADOLOL [Concomitant]
     Route: 048
  9. CALCIUM [Concomitant]
     Route: 048
  10. RESTORIL [Concomitant]
  11. FENOFIBRATE [Concomitant]
     Indication: HYPERTRIGLYCERIDAEMIA
     Dates: end: 2011

REACTIONS (2)
  - Blood triglycerides increased [Not Recovered/Not Resolved]
  - Drug effect incomplete [Unknown]
